FAERS Safety Report 5213022-8 (Version None)
Quarter: 2007Q1

REPORT INFORMATION
  Report Type: 
  Country: None (occurrence: None)
  Receive Date: 20070117
  Receipt Date: 20070117
  Transmission Date: 20070707
  Serious: Yes (Disabling, Other)
  Sender: FDA-Public Use
  Company Number: None

PATIENT
  Age: 38 Year
  Sex: Male
  Weight: 97.5234 kg

DRUGS (1)
  1. OMACOR [Suspect]
     Indication: BLOOD TRIGLYCERIDES INCREASED
     Dosage: 2 GRAMS TWICE DAILY PO; 3-4 MONTHS
     Route: 048

REACTIONS (15)
  - ABDOMINAL DISTENSION [None]
  - BRONCHITIS [None]
  - BURNING SENSATION [None]
  - CHEST PAIN [None]
  - CONFUSIONAL STATE [None]
  - DEPRESSION [None]
  - DISCOMFORT [None]
  - FEELING ABNORMAL [None]
  - FLATULENCE [None]
  - HAEMORRHOIDS [None]
  - PAIN [None]
  - PALPITATIONS [None]
  - PHARMACEUTICAL PRODUCT COMPLAINT [None]
  - TENDON DISORDER [None]
  - TENDON PAIN [None]
